FAERS Safety Report 7085569-3 (Version None)
Quarter: 2010Q4

REPORT INFORMATION
  Report Type: 
  Country: None (occurrence: None)
  Receive Date: 20101105
  Receipt Date: 20101026
  Transmission Date: 20110411
  Serious: Yes (Hospitalization)
  Sender: FDA-Public Use
  Company Number: BR-MEDIMMUNE-MEDI-0011629

PATIENT
  Sex: Female
  Weight: 5.2 kg

DRUGS (2)
  1. SYNAGIS [Suspect]
     Route: 030
     Dates: start: 20100513
  2. BENZALKONIUM CHLORIDE [Concomitant]
     Route: 045

REACTIONS (6)
  - ANAEMIA [None]
  - BRONCHIOLITIS [None]
  - FATIGUE [None]
  - OXYGEN SATURATION DECREASED [None]
  - PNEUMONIA [None]
  - PYREXIA [None]
